FAERS Safety Report 7353923-8 (Version None)
Quarter: 2011Q1

REPORT INFORMATION
  Report Type: 
  Country: None (occurrence: None)
  Receive Date: 20110315
  Receipt Date: 20110301
  Transmission Date: 20110831
  Serious: Yes (Other)
  Sender: FDA-Public Use
  Company Number: PHHY2011DK11985

PATIENT
  Sex: Female
  Weight: 56 kg

DRUGS (4)
  1. RITALIN TAB [Interacting]
     Indication: ATTENTION DEFICIT/HYPERACTIVITY DISORDER
     Dosage: 20 MG, UNK
     Route: 048
  2. NOVORAPID [Concomitant]
     Indication: DIABETES MELLITUS
     Dosage: 19 U, QD
     Dates: start: 20110204
  3. LEVEMIR [Interacting]
     Indication: DIABETES MELLITUS
     Dosage: 19 U, QD
     Dates: start: 20110204
  4. RITALIN [Suspect]
     Indication: ATTENTION DEFICIT/HYPERACTIVITY DISORDER
     Dosage: 10 MG, UNK

REACTIONS (2)
  - DRUG INTERACTION [None]
  - THERAPEUTIC RESPONSE DECREASED [None]
